FAERS Safety Report 5061633-5 (Version None)
Quarter: 2006Q3

REPORT INFORMATION
  Report Type: 
  Country: None (occurrence: None)
  Receive Date: 20060721
  Receipt Date: 20060711
  Transmission Date: 20061208
  Serious: Yes (Other)
  Sender: FDA-Public Use
  Company Number: 2006085415

PATIENT
  Age: 51 Year
  Sex: Male
  Weight: 56.6996 kg

DRUGS (2)
  1. ZOLOFT [Suspect]
     Indication: ANXIETY DISORDER
     Dosage: 75 MG
     Dates: start: 20051215, end: 20060402
  2. ZOLOFT [Suspect]
     Indication: PALPITATIONS
     Dosage: 75 MG
     Dates: start: 20051215, end: 20060402

REACTIONS (6)
  - ATROPHY [None]
  - INSOMNIA [None]
  - PALPITATIONS [None]
  - PARAESTHESIA [None]
  - SINUS BRADYCARDIA [None]
  - TREMOR [None]
